FAERS Safety Report 15812470 (Version 1)
Quarter: 2019Q1

REPORT INFORMATION
  Report Type: Spontaneous
  Country: GB (occurrence: GB)
  Receive Date: 20190111
  Receipt Date: 20190111
  Transmission Date: 20190417
  Serious: Yes (Other)
  Sender: FDA-Public Use
  Company Number: GB-MYLANLABS-2019M1001719

PATIENT
  Age: 52 Year
  Sex: Male
  Weight: 72 kg

DRUGS (9)
  1. RALTEGRAVIR. [Concomitant]
     Active Substance: RALTEGRAVIR
  2. ACICLOVIR MYLAN [Suspect]
     Active Substance: ACYCLOVIR
     Indication: GENITAL HERPES
     Dosage: 1200 MILLIGRAM, QD
     Route: 048
     Dates: start: 20181206
  3. TRUVADA [Concomitant]
     Active Substance: EMTRICITABINE\TENOFOVIR DISOPROXIL FUMARATE
  4. TRAMADOL. [Concomitant]
     Active Substance: TRAMADOL
  5. EPILIM [Concomitant]
     Active Substance: VALPROATE SODIUM
  6. MIRTAZAPINE. [Concomitant]
     Active Substance: MIRTAZAPINE
  7. ZOPICLONE [Concomitant]
     Active Substance: ZOPICLONE
     Dosage: UNK
  8. SUMATRIPTAN                        /01044802/ [Concomitant]
     Active Substance: SUMATRIPTAN SUCCINATE
  9. LANSOPRAZOLE. [Concomitant]
     Active Substance: LANSOPRAZOLE

REACTIONS (1)
  - Penile swelling [Not Recovered/Not Resolved]

NARRATIVE: CASE EVENT DATE: 20181206
